FAERS Safety Report 14156864 (Version 1)
Quarter: 2017Q4

REPORT INFORMATION
  Report Type: Spontaneous
  Country: US (occurrence: US)
  Receive Date: 20171103
  Receipt Date: 20171103
  Transmission Date: 20180321
  Serious: Yes (Hospitalization)
  Sender: FDA-Public Use
  Company Number: US-ELI_LILLY_AND_COMPANY-US201710009611

PATIENT
  Age: 77 Year
  Sex: Female

DRUGS (2)
  1. HUMALOG [Suspect]
     Active Substance: INSULIN LISPRO
     Indication: TYPE 2 DIABETES MELLITUS
     Dosage: 6-18 U, UNKNOWN
     Route: 058
     Dates: start: 1989
  2. LANTUS [Suspect]
     Active Substance: INSULIN GLARGINE
     Indication: TYPE 2 DIABETES MELLITUS
     Dosage: 30 U, DAILY NIGHTLY

REACTIONS (10)
  - Spinal osteoarthritis [Unknown]
  - Cataract [Unknown]
  - Retinal disorder [Unknown]
  - Blood potassium increased [Recovered/Resolved]
  - Blood glucose increased [Unknown]
  - Arthritis [Unknown]
  - Fall [Unknown]
  - Diabetic neuropathy [Unknown]
  - Visual impairment [Unknown]
  - Underdose [Unknown]

NARRATIVE: CASE EVENT DATE: 201601
